FAERS Safety Report 5090042-8 (Version None)
Quarter: 2006Q3

REPORT INFORMATION
  Report Type: 
  Country: None (occurrence: None)
  Receive Date: 20060731
  Receipt Date: 20060620
  Transmission Date: 20061208
  Serious: Yes (Other)
  Sender: FDA-Public Use
  Company Number: 200612584BWH

PATIENT
  Age: 54 Year
  Sex: Female

DRUGS (8)
  1. AVELOX [Suspect]
     Indication: SINUSITIS
     Dosage: 400 MG, ONCE, ORAL
     Route: 048
     Dates: start: 20060417
  2. TOPROL-XL [Suspect]
     Indication: DRUG USE FOR UNKNOWN INDICATION
  3. PLAVIX [Concomitant]
  4. MOBIC [Concomitant]
  5. ZOCOR [Concomitant]
  6. NORVASC [Concomitant]
  7. PROTONIX [Concomitant]
  8. NITROGLYCERIN [Concomitant]

REACTIONS (6)
  - ANXIETY [None]
  - FATIGUE [None]
  - HYPOTENSION [None]
  - INCOHERENT [None]
  - LOSS OF CONSCIOUSNESS [None]
  - THROAT IRRITATION [None]
